FAERS Safety Report 12828441 (Version 1)
Quarter: 2016Q4

REPORT INFORMATION
  Report Type: Spontaneous
  Country: CH (occurrence: CH)
  Receive Date: 20161007
  Receipt Date: 20161007
  Transmission Date: 20170207
  Serious: Yes (Hospitalization)
  Sender: FDA-Public Use
  Company Number: CH-BAYER-2016-191844

PATIENT
  Age: 67 Year
  Sex: Male

DRUGS (22)
  1. PLAVIX [Concomitant]
     Active Substance: CLOPIDOGREL BISULFATE
     Dosage: 75 MG, QD
     Route: 048
     Dates: end: 20160901
  2. BACTRIM [Suspect]
     Active Substance: SULFAMETHOXAZOLE\TRIMETHOPRIM
     Dosage: .5 DF, TIW
     Route: 048
  3. SPORANOX [Suspect]
     Active Substance: ITRACONAZOLE
     Dosage: 100 MG, BID
     Route: 048
  4. ALDACTONE [Suspect]
     Active Substance: SPIRONOLACTONE
     Dosage: 12.5 MG, QD
     Route: 048
  5. METOLAZONE. [Concomitant]
     Active Substance: METOLAZONE
     Dosage: 5 MG, QD
     Route: 048
     Dates: end: 20160901
  6. MOVICOL [Concomitant]
     Active Substance: POLYETHYLENE GLYCOL 3350\POTASSIUM CHLORIDE\SODIUM BICARBONATE\SODIUM CHLORIDE
     Dosage: 1 DF, BID
     Dates: end: 20160901
  7. ASPIRIN CARDIO [Suspect]
     Active Substance: ASPIRIN
     Dosage: 100 MG, QD
     Route: 048
  8. PREDNISON GALEPHARM [Concomitant]
     Active Substance: PREDNISONE
     Dosage: 10 MG, 4IW
     Route: 048
  9. SELIPRAN [Concomitant]
     Active Substance: PRAVASTATIN SODIUM
     Dosage: 20 MG, QD
     Route: 048
  10. MAGNESIOCARD [Concomitant]
     Active Substance: MAGNESIUM ASPARTATE HYDROCHLORIDE
     Dosage: 10 MMOL, TID
     Route: 048
  11. AMPHO-MORONAL [Concomitant]
     Active Substance: AMPHOTERICIN B
     Dosage: 1 DF, QID
     Route: 002
  12. ZITHROMAX [Suspect]
     Active Substance: AZITHROMYCIN DIHYDRATE
     Dosage: 250 MG, TIW
     Route: 048
  13. NOVORAPID [Concomitant]
     Active Substance: INSULIN ASPART
     Dosage: 1 DF, UNK
     Route: 058
  14. TOREM [Suspect]
     Active Substance: TORSEMIDE
     Dosage: 5 MG, UNK
     Route: 048
  15. ZESTRIL [Suspect]
     Active Substance: LISINOPRIL
     Dosage: 2.5 MG, QD
     Route: 048
     Dates: end: 20160901
  16. CALCIMAGON [Concomitant]
     Active Substance: CALCIUM
     Dosage: 1 DF, QD
     Route: 048
     Dates: end: 20160901
  17. PRADIF T [Concomitant]
     Active Substance: TAMSULOSIN HYDROCHLORIDE
     Dosage: .4 MG, QD
     Route: 048
  18. FUNGIZONE [Suspect]
     Active Substance: AMPHOTERICIN B
     Dosage: 5 MG, QD
     Route: 055
  19. CONCOR [Concomitant]
     Active Substance: BISOPROLOL FUMARATE
     Dosage: 1.25 MG, QD
     Route: 048
     Dates: end: 20160901
  20. SANDIMMUN NEORAL [Suspect]
     Active Substance: CYCLOSPORINE
     Dosage: 10 MG, QID
     Route: 048
  21. VALTREX [Suspect]
     Active Substance: VALACYCLOVIR HYDROCHLORIDE
     Dosage: 500 MG, BID
     Route: 048
  22. PREDNISON GALEPHARM [Concomitant]
     Active Substance: PREDNISONE
     Dosage: 7.5 MG, TIW
     Route: 048

REACTIONS (1)
  - Acute kidney injury [Recovering/Resolving]

NARRATIVE: CASE EVENT DATE: 20160827
